FAERS Safety Report 7180434-5 (Version None)
Quarter: 2010Q4

REPORT INFORMATION
  Report Type: 
  Country: None (occurrence: None)
  Receive Date: 20101221
  Receipt Date: 20100823
  Transmission Date: 20110411
  Serious: Yes (Life-Threatening, Hospitalization)
  Sender: FDA-Public Use
  Company Number: B0690227A

PATIENT
  Sex: Female

DRUGS (2)
  1. CLAVURION [Suspect]
     Indication: SKIN INFECTION
     Route: 048
     Dates: start: 20100719, end: 20100724
  2. THYROXIN [Concomitant]
     Route: 048

REACTIONS (13)
  - DERMATITIS EXFOLIATIVE [None]
  - ERYTHEMA [None]
  - ERYTHEMA MULTIFORME [None]
  - HYPOTENSION [None]
  - LOCAL SWELLING [None]
  - LUNG DISORDER [None]
  - OBSTRUCTIVE AIRWAYS DISORDER [None]
  - PNEUMONIA [None]
  - PROTEINURIA [None]
  - PRURITUS [None]
  - PYREXIA [None]
  - SWELLING [None]
  - TACHYCARDIA [None]
